FAERS Safety Report 6478410-0 (Version None)
Quarter: 2009Q4

REPORT INFORMATION
  Report Type: 
  Country: None (occurrence: None)
  Receive Date: 20091207
  Receipt Date: 20091202
  Transmission Date: 20100525
  Serious: Yes (Death)
  Sender: FDA-Public Use
  Company Number: PHHY2009JP53242

PATIENT
  Age: 83 Year
  Sex: Female

DRUGS (2)
  1. TASIGNA [Suspect]
     Indication: CHRONIC MYELOID LEUKAEMIA
     Dosage: 400 MG DAILY
     Route: 048
     Dates: start: 20091125, end: 20091130
  2. DIART [Concomitant]
     Dosage: 30 MG, UNK
     Route: 048
     Dates: end: 20091130

REACTIONS (1)
  - CARDIAC FAILURE CONGESTIVE [None]
